FAERS Safety Report 5486971-3 (Version None)
Quarter: 2007Q4

REPORT INFORMATION
  Report Type: 
  Country: None (occurrence: None)
  Receive Date: 20071012
  Receipt Date: 20071012
  Transmission Date: 20080405
  Serious: Yes (Hospitalization)
  Sender: FDA-Public Use
  Company Number: None

PATIENT
  Sex: Male
  Weight: 58 kg

DRUGS (1)
  1. FEIBA [Suspect]
     Indication: FACTOR VIII INHIBITION
     Dosage: 4074 UNITS EVERY 1-2 DAYS IV BOLUS
     Route: 040
     Dates: start: 20051130, end: 20070930

REACTIONS (4)
  - INFUSION RELATED REACTION [None]
  - PYREXIA [None]
  - TREMOR [None]
  - VOMITING [None]
